FAERS Safety Report 25902962 (Version 1)
Quarter: 2025Q4

REPORT INFORMATION
  Report Type: Spontaneous
  Country: US (occurrence: None)
  Receive Date: 20251009
  Receipt Date: 20251009
  Transmission Date: 20260117
  Serious: Yes (Hospitalization, Other)
  Sender: FDA-CTU
  Company Number: None

PATIENT
  Age: 71 Year
  Sex: Male
  Weight: 97.02 kg

DRUGS (13)
  1. DOXYCYCLINE [Suspect]
     Active Substance: DOXYCYCLINE
     Indication: Staphylococcal infection
     Dosage: FREQUENCY : TWICE A DAY;?
     Route: 048
     Dates: start: 20250716, end: 20250721
  2. amiodarone 200mg Daily [Concomitant]
  3. ATORVASTATIN [Concomitant]
     Active Substance: ATORVASTATIN
  4. Baclofen 5mg HS [Concomitant]
  5. budesonide 9 mg oral DR Daily [Concomitant]
  6. Bumetanide 2mg Daily [Concomitant]
  7. CLOPIDOGREL [Concomitant]
     Active Substance: CLOPIDOGREL BISULFATE
  8. Empagliflozin 25mg Daily [Concomitant]
  9. Levothyroxine 200mg Daily [Concomitant]
  10. Metoprolol succinate ER 12.5mg Daily [Concomitant]
  11. pantoprazole 40mg BID [Concomitant]
  12. potassium chloride 10mEq ER Daily [Concomitant]
  13. LINEZOLID [Suspect]
     Active Substance: LINEZOLID

REACTIONS (4)
  - Rash morbilliform [None]
  - Pruritus [None]
  - Dyspnoea [None]
  - Rash erythematous [None]

NARRATIVE: CASE EVENT DATE: 20250721
